FAERS Safety Report 6808426-3 (Version None)
Quarter: 2010Q2

REPORT INFORMATION
  Report Type: 
  Country: None (occurrence: None)
  Receive Date: 20100629
  Receipt Date: 20090630
  Transmission Date: 20101027
  Serious: No
  Sender: FDA-Public Use
  Company Number: US-PFIZER INC-2009197469

PATIENT
  Sex: Male

DRUGS (2)
  1. XANAX [Suspect]
  2. LYRICA [Suspect]

REACTIONS (3)
  - HYPOAESTHESIA [None]
  - OEDEMA PERIPHERAL [None]
  - PANIC ATTACK [None]
